FAERS Safety Report 8863683 (Version 1)
Quarter: 2012Q4

REPORT INFORMATION
  Report Type: 
  Country: US (occurrence: US)
  Receive Date: 20121024
  Receipt Date: 20121024
  Transmission Date: 20130627
  Serious: No
  Sender: FDA-Public Use
  Company Number: US-AMGEN-USASP2011063549

PATIENT
  Sex: Male

DRUGS (2)
  1. ENBREL [Suspect]
     Indication: RHEUMATOID ARTHRITIS
     Dosage: 50 mg, qwk
     Dates: start: 201109
  2. IMITREX                            /01044801/ [Concomitant]
     Dosage: UNK

REACTIONS (2)
  - Injection site bruising [Recovering/Resolving]
  - Diarrhoea [Recovering/Resolving]
